FAERS Safety Report 8273140-7 (Version None)
Quarter: 2012Q2

REPORT INFORMATION
  Report Type: 
  Country: None (occurrence: None)
  Receive Date: 20120411
  Receipt Date: 20120406
  Transmission Date: 20120825
  Serious: Yes (Other)
  Sender: FDA-Public Use
  Company Number: US-PFIZER INC-2012087529

PATIENT
  Age: 35 Year
  Sex: Female

DRUGS (3)
  1. TYGACIL [Suspect]
     Indication: SOFT TISSUE INFECTION
     Dosage: 100 MG, UNK
     Dates: start: 20120301, end: 20120301
  2. TYGACIL [Suspect]
     Dosage: UNKNOWN DOSE, EVERY 12 HOURS
     Dates: start: 20120301, end: 20120301
  3. TYGACIL [Suspect]
     Indication: BREAST ABSCESS
     Dosage: 50 MG EVERY 12 HOURS
     Dates: start: 20120301, end: 20120301

REACTIONS (2)
  - RENAL FAILURE [None]
  - PANCREATITIS ACUTE [None]
